FAERS Safety Report 16414899 (Version 1)
Quarter: 2019Q2

REPORT INFORMATION
  Report Type: Spontaneous
  Country: JP (occurrence: JP)
  Receive Date: 20190611
  Receipt Date: 20190611
  Transmission Date: 20190711
  Serious: Yes (Hospitalization)
  Sender: FDA-Public Use
  Company Number: JP-ALLERGAN-1924168US

PATIENT
  Age: 47 Year
  Sex: Male

DRUGS (1)
  1. MESALAZINE UNK [Suspect]
     Active Substance: MESALAMINE
     Indication: COLITIS ULCERATIVE
     Dosage: 2400 MG, QD
     Route: 065

REACTIONS (5)
  - Product use issue [Unknown]
  - Dyspnoea [Recovering/Resolving]
  - Left ventricular dysfunction [Recovered/Resolved]
  - Eosinophilic myocarditis [Recovered/Resolved]
  - Atrioventricular block [Recovered/Resolved]
